FAERS Safety Report 8064792-5 (Version None)
Quarter: 2012Q1

REPORT INFORMATION
  Report Type: 
  Country: None (occurrence: None)
  Receive Date: 20120124
  Receipt Date: 20120118
  Transmission Date: 20120608
  Serious: Yes (Hospitalization)
  Sender: FDA-Public Use
  Company Number: US-BIOGENIDEC-2011BI044246

PATIENT
  Age: 62 Year
  Sex: Female

DRUGS (1)
  1. TYSABRI [Suspect]
     Indication: MULTIPLE SCLEROSIS
     Route: 042
     Dates: start: 20110804, end: 20110902

REACTIONS (7)
  - CONVULSION [None]
  - CYSTITIS [None]
  - LUNG INFECTION [None]
  - URINARY TRACT INFECTION [None]
  - ABASIA [None]
  - DIPLOPIA [None]
  - JOINT SWELLING [None]
